FAERS Safety Report 15577125 (Version 3)
Quarter: 2019Q3

REPORT INFORMATION
  Report Type: Report from Study
  Country: None (occurrence: US)
  Receive Date: 20181101
  Receipt Date: 20190820
  Transmission Date: 20191004
  Serious: Yes (Other)
  Sender: FDA-Public Use
  Company Number: US-ABBVIE-18K-163-2437944-00

PATIENT
  Sex: Male

DRUGS (5)
  1. VENCLEXTA [Suspect]
     Active Substance: VENETOCLAX
     Route: 048
     Dates: start: 201908
  2. VENCLEXTA [Suspect]
     Active Substance: VENETOCLAX
     Route: 048
     Dates: end: 2019
  3. VENCLEXTA [Suspect]
     Active Substance: VENETOCLAX
     Route: 048
  4. IBRUTINIB [Suspect]
     Active Substance: IBRUTINIB
     Indication: PRODUCT USED FOR UNKNOWN INDICATION
     Route: 065
  5. VENCLEXTA [Suspect]
     Active Substance: VENETOCLAX
     Indication: CHRONIC LYMPHOCYTIC LEUKAEMIA
     Route: 048
     Dates: start: 20180423

REACTIONS (24)
  - Prostate cancer [Unknown]
  - Tumour lysis syndrome [Unknown]
  - Hepatic adenoma [Unknown]
  - Hepatomegaly [Unknown]
  - Neutropenia [Unknown]
  - Thrombocytopenia [Unknown]
  - Lymphadenopathy [Unknown]
  - Emotional disorder [Recovering/Resolving]
  - Bradycardia [Unknown]
  - Kidney angiomyolipoma [Unknown]
  - Biliary adenoma [Unknown]
  - White blood cell count decreased [Recovering/Resolving]
  - Platelet count decreased [Recovering/Resolving]
  - Chronic lymphocytic leukaemia recurrent [Unknown]
  - Cough [Unknown]
  - Drug hypersensitivity [Unknown]
  - Cardiac disorder [Unknown]
  - Burning sensation [Recovering/Resolving]
  - Gastric mucosal lesion [Unknown]
  - Gastrointestinal oedema [Unknown]
  - Drug intolerance [Unknown]
  - Muscle spasms [Unknown]
  - Unevaluable event [Recovering/Resolving]
  - Intestinal mass [Unknown]

NARRATIVE: CASE EVENT DATE: 2018
